FAERS Safety Report 6074508-X (Version None)
Quarter: 2009Q1

REPORT INFORMATION
  Report Type: 
  Country: None (occurrence: None)
  Receive Date: 20090206
  Receipt Date: 20090114
  Transmission Date: 20090719
  Serious: Yes (Other)
  Sender: FDA-Public Use
  Company Number: 230018K09GRC

PATIENT
  Sex: Male

DRUGS (1)
  1. REBIF [Suspect]
     Indication: DRUG USE FOR UNKNOWN INDICATION

REACTIONS (3)
  - ARTERIAL THROMBOSIS [None]
  - CHOLELITHIASIS [None]
  - NEPHROLITHIASIS [None]
